FAERS Safety Report 7319870-2 (Version None)
Quarter: 2011Q1

REPORT INFORMATION
  Report Type: 
  Country: None (occurrence: None)
  Receive Date: 20110228
  Receipt Date: 20101103
  Transmission Date: 20110831
  Serious: No
  Sender: FDA-Public Use
  Company Number: A0890555A

PATIENT
  Age: 7 Year
  Sex: Male

DRUGS (10)
  1. ZYRTEC [Concomitant]
  2. ALBUTEROL [Concomitant]
  3. XOPENEX [Concomitant]
  4. FLOVENT [Concomitant]
  5. LAMOTRIGINE [Suspect]
     Indication: PARTIAL SEIZURES
     Route: 048
     Dates: start: 20101004
  6. CLONIDINE [Concomitant]
  7. DEPAKOTE [Concomitant]
  8. VYVANSE [Concomitant]
  9. SINGULAIR [Concomitant]
  10. PULMICORT [Concomitant]

REACTIONS (6)
  - ERYTHEMA [None]
  - MUSCULOSKELETAL PAIN [None]
  - SKIN EXFOLIATION [None]
  - CHILLS [None]
  - RASH [None]
  - PAIN IN EXTREMITY [None]
